FAERS Safety Report 16630321 (Version 1)
Quarter: 2019Q3

REPORT INFORMATION
  Report Type: Spontaneous
  Country: DE (occurrence: DE)
  Receive Date: 20190725
  Receipt Date: 20190725
  Transmission Date: 20191004
  Serious: Yes (Other)
  Sender: FDA-Public Use
  Company Number: DE-ACCORD-139154

PATIENT
  Age: 41 Year
  Sex: Female
  Weight: 59 kg

DRUGS (1)
  1. QUETIAPINE ACCORD [Suspect]
     Active Substance: QUETIAPINE
     Indication: INSOMNIA
     Dosage: STRENGTH: 150 MG?1 TABLET/EVENING?DOSE REDUCED TO 50 MG AND 25 MG IN APR-2019
     Route: 048
     Dates: start: 201811

REACTIONS (9)
  - Lupus-like syndrome [Not Recovered/Not Resolved]
  - Off label use [Unknown]
  - Menstrual disorder [Unknown]
  - Product prescribing error [Unknown]
  - Arthritis [Not Recovered/Not Resolved]
  - Heart rate decreased [Recovered/Resolved]
  - Raynaud^s phenomenon [Unknown]
  - Joint swelling [Not Recovered/Not Resolved]
  - Synovitis [Not Recovered/Not Resolved]

NARRATIVE: CASE EVENT DATE: 2018
